FAERS Safety Report 10218501 (Version 2)
Quarter: 2014Q2

REPORT INFORMATION
  Report Type: Spontaneous
  Country: US (occurrence: US)
  Receive Date: 20140605
  Receipt Date: 20140605
  Transmission Date: 20141212
  Serious: No
  Sender: FDA-Public Use
  Company Number: US-009507513-1404USA006736

PATIENT
  Age: 90 Year
  Sex: Female
  Weight: 75.28 kg

DRUGS (4)
  1. OXYTROL FOR WOMEN [Suspect]
     Indication: MICTURITION URGENCY
     Dosage: 1 DF, Q4D
     Route: 062
     Dates: end: 20140404
  2. OXYTROL FOR WOMEN [Suspect]
     Indication: NOCTURIA
     Dosage: UNK
     Route: 062
     Dates: start: 201310, end: 201312
  3. LOSARTAN POTASSIUM [Concomitant]
     Indication: HYPERTENSION
     Dosage: 25 MG, QD
  4. TUMS [Concomitant]
     Indication: DYSPEPSIA
     Dosage: UNK, PRN

REACTIONS (3)
  - Erythema [Recovered/Resolved]
  - Rash [Recovered/Resolved]
  - Off label use [Unknown]
